FAERS Safety Report 9960096 (Version 1)
Quarter: 2014Q1

REPORT INFORMATION
  Report Type: Spontaneous
  Country: US (occurrence: None)
  Receive Date: 20140228
  Receipt Date: 20140228
  Transmission Date: 20141002
  Serious: Yes (Other)
  Sender: FDA-Public Use
  Company Number: None

PATIENT
  Age: 62 Year
  Sex: Male
  Weight: 88.45 kg

DRUGS (1)
  1. ANDROGEL [Suspect]
     Indication: HYPOGONADISM
     Route: 062

REACTIONS (2)
  - Prostatic specific antigen increased [None]
  - Biopsy prostate abnormal [None]
